FAERS Safety Report 8894814 (Version 2)
Quarter: 2012Q4

REPORT INFORMATION
  Report Type: 
  Country: US (occurrence: US)
  Receive Date: 20121108
  Receipt Date: 20121214
  Transmission Date: 20130627
  Serious: Yes (Other)
  Sender: FDA-Public Use
  Company Number: US-PFIZER INC-2012278068

PATIENT
  Age: 53 Year
  Sex: Male
  Weight: 70.3 kg

DRUGS (4)
  1. LYRICA [Suspect]
     Indication: NERVE PAIN
     Dosage: 50 mg, 3x/day
     Route: 048
     Dates: start: 2011, end: 20121018
  2. PROPRANOLOL [Concomitant]
     Indication: TREMOR
     Dosage: 20 mg, 1x/day
  3. VICODIN [Concomitant]
     Indication: PAIN IN ARM
     Dosage: [hydrocodone 7.5mg]/[acetaminophen 750mg], as needed
  4. XALATAN [Concomitant]
     Indication: GLAUCOMA
     Dosage: UNK (one drop in each eye), 1x/day
     Route: 047

REACTIONS (5)
  - Tendon rupture [Unknown]
  - Soft tissue disorder [Unknown]
  - Cataract [Not Recovered/Not Resolved]
  - Drug administration error [Unknown]
  - Drug ineffective [Not Recovered/Not Resolved]
